FAERS Safety Report 9166126 (Version 3)
Quarter: 2013Q3

REPORT INFORMATION
  Report Type: Spontaneous
  Country: US (occurrence: US)
  Receive Date: 20130315
  Receipt Date: 20130812
  Transmission Date: 20140515
  Serious: Yes (Other)
  Sender: FDA-Public Use
  Company Number: US-ALLERGAN-1303547US

PATIENT
  Age: 65 Year
  Sex: Female

DRUGS (7)
  1. OZURDEX [Suspect]
     Indication: RETINITIS PIGMENTOSA
     Dosage: 0.7 MG, SINGLE DOSE  Q 2 MONTHS
     Route: 031
     Dates: start: 20110914, end: 20130221
  2. AZOPT [Concomitant]
     Indication: GLAUCOMA
     Dosage: 2 GTT, Q12H
     Route: 047
     Dates: start: 201004
  3. AZOPT [Concomitant]
     Indication: OCULAR HYPERTENSION
  4. ISTALOL [Concomitant]
     Indication: GLAUCOMA
     Dosage: 1 GTT, Q12H
     Route: 047
     Dates: start: 201004
  5. ISTALOL [Concomitant]
     Indication: OCULAR HYPERTENSION
  6. XALATAN [Concomitant]
     Indication: GLAUCOMA
     Dosage: 2 GTT, QHS
     Route: 047
     Dates: start: 201004
  7. XALATAN [Concomitant]
     Indication: OCULAR HYPERTENSION

REACTIONS (4)
  - Visual acuity reduced [Not Recovered/Not Resolved]
  - Vitreous haemorrhage [Not Recovered/Not Resolved]
  - Vision blurred [Not Recovered/Not Resolved]
  - Off label use [Unknown]
